FAERS Safety Report 6097868-2 (Version None)
Quarter: 2009Q1

REPORT INFORMATION
  Report Type: 
  Country: None (occurrence: None)
  Receive Date: 20090227
  Receipt Date: 20090219
  Transmission Date: 20090719
  Serious: Yes (Hospitalization)
  Sender: FDA-Public Use
  Company Number: JP-JNJFOC-20061103111

PATIENT
  Sex: Female
  Weight: 50 kg

DRUGS (16)
  1. PLACEBO (INFLIXIMIB) [Suspect]
     Route: 042
  2. PLACEBO [Suspect]
     Indication: COLITIS ULCERATIVE
     Route: 042
  3. PENTASA [Concomitant]
     Route: 048
  4. PENTASA [Concomitant]
     Route: 048
  5. PENTASA [Concomitant]
     Indication: COLITIS ULCERATIVE
     Route: 048
  6. BIOFERMIN [Concomitant]
     Indication: COLITIS ULCERATIVE
     Route: 048
  7. MUCOSTA [Concomitant]
     Indication: GASTROINTESTINAL DISORDER THERAPY
     Route: 048
  8. FERROMIA [Concomitant]
     Route: 048
  9. FERROMIA [Concomitant]
     Indication: IRON DEFICIENCY ANAEMIA
     Route: 048
  10. BREDININ [Concomitant]
     Indication: COLITIS ULCERATIVE
  11. PROGRAF [Concomitant]
     Route: 048
  12. PROGRAF [Concomitant]
     Route: 048
  13. PROGRAF [Concomitant]
     Route: 048
  14. PROGRAF [Concomitant]
     Route: 048
  15. PROGRAF [Concomitant]
     Indication: COLITIS ULCERATIVE
     Route: 048
  16. TPN [Concomitant]
     Indication: COLITIS ULCERATIVE

REACTIONS (2)
  - HEAD INJURY [None]
  - LOSS OF CONSCIOUSNESS [None]
